FAERS Safety Report 5788528-3 (Version None)
Quarter: 2008Q2

REPORT INFORMATION
  Report Type: 
  Country: None (occurrence: None)
  Receive Date: 20080626
  Receipt Date: 20080616
  Transmission Date: 20081010
  Serious: Yes (Other)
  Sender: FDA-Public Use
  Company Number: US-JNJFOC-20080604457

PATIENT
  Sex: Female
  Weight: 113.4 kg

DRUGS (4)
  1. DURAGESIC-100 [Suspect]
     Dosage: 4 X 100UG/HR
     Route: 062
  2. DURAGESIC-100 [Suspect]
     Indication: PAIN
     Route: 062
  3. FENTANYL TRANSDERMAL SYSTEM [Suspect]
     Indication: PAIN
     Route: 062
  4. STOMACH MEDICATION [Concomitant]
     Indication: GASTRIC DISORDER
     Route: 048

REACTIONS (4)
  - APPLICATION SITE REACTION [None]
  - INCORRECT DRUG ADMINISTRATION DURATION [None]
  - TENDON RUPTURE [None]
  - WRONG TECHNIQUE IN DRUG USAGE PROCESS [None]
